FAERS Safety Report 8489537-6 (Version None)
Quarter: 2012Q3

REPORT INFORMATION
  Report Type: 
  Country: None (occurrence: None)
  Receive Date: 20120705
  Receipt Date: 20120622
  Transmission Date: 20120928
  Serious: No
  Sender: FDA-Public Use
  Company Number: US-BAYER-2012-062456

PATIENT

DRUGS (1)
  1. FINACEA [Suspect]
     Indication: ROSACEA

REACTIONS (1)
  - RASH ERYTHEMATOUS [None]
